FAERS Safety Report 22398880 (Version 1)
Quarter: 2023Q2

REPORT INFORMATION
  Report Type: Spontaneous
  Country: US (occurrence: US)
  Receive Date: 20230602
  Receipt Date: 20230602
  Transmission Date: 20230722
  Serious: Yes (Other)
  Sender: FDA-Public Use
  Company Number: US-009507513-2305USA009442

PATIENT
  Sex: Female

DRUGS (1)
  1. KEYTRUDA [Suspect]
     Active Substance: PEMBROLIZUMAB
     Indication: Triple negative breast cancer
     Dosage: UNK, Q3W

REACTIONS (6)
  - Sjogren^s syndrome [Unknown]
  - Surgery [Unknown]
  - Oral disorder [Recovering/Resolving]
  - Tongue discomfort [Recovering/Resolving]
  - Tongue discolouration [Recovering/Resolving]
  - Aptyalism [Unknown]
